FAERS Safety Report 7728331-8 (Version None)
Quarter: 2011Q3

REPORT INFORMATION
  Report Type: 
  Country: None (occurrence: None)
  Receive Date: 20110905
  Receipt Date: 20110830
  Transmission Date: 20111222
  Serious: Yes (Other)
  Sender: FDA-Public Use
  Company Number: PHEH2007US09930

PATIENT
  Sex: Male

DRUGS (25)
  1. AREDIA [Suspect]
     Indication: MULTIPLE MYELOMA
     Dosage: 90MG
     Dates: start: 20020902
  2. LEVAQUIN [Concomitant]
     Dosage: UNK
     Dates: end: 20090115
  3. ONDANSETRON [Concomitant]
     Dosage: UNK
  4. DEXAMETHASONE [Concomitant]
     Dosage: 40 MG / DAY 1-4 OF EVERY 28 DAY CYCLE
     Dates: start: 20070202
  5. MELPHALAN HYDROCHLORIDE [Concomitant]
     Dosage: 10 MG / DAILY
  6. CYTOXAN [Concomitant]
     Dosage: UNK
     Dates: end: 20081201
  7. OXYCODONE HCL [Concomitant]
     Dosage: UNK
  8. SUDAFED 12 HOUR [Concomitant]
     Indication: SINUS CONGESTION
     Dosage: UNK
  9. BENADRYL ^ACHE^ [Concomitant]
     Indication: SINUS CONGESTION
     Dosage: UNK
  10. ARANESP [Concomitant]
     Dosage: UNK
  11. DECADRON [Concomitant]
  12. PERCOCET [Concomitant]
     Dosage: 5 / 325, AS NEEDED
  13. FORADIL                                 /USA/ [Concomitant]
     Dosage: UNK
  14. PROCRIT                            /00909301/ [Concomitant]
     Dosage: UNK
  15. ALBUTEROL SULFATE AUTOHALER [Concomitant]
     Dosage: UNK
  16. THALIDOMIDE [Concomitant]
     Dosage: UNK
  17. ZOMETA [Suspect]
     Indication: MULTIPLE MYELOMA
     Dosage: 4MG
     Dates: end: 20070101
  18. DOXIL [Concomitant]
     Dosage: UNK
     Dates: end: 20081001
  19. OMEPRAZOLE [Concomitant]
     Dosage: UNK
  20. METHADONE HCL [Concomitant]
     Dosage: 50 MG / EVERY 8 HRS
     Route: 048
  21. PREDNISONE [Concomitant]
     Dosage: 60 MG FOR 7 DAYS, FOLLOWED BY 20 MG EVERY OTHER DAY
     Dates: end: 20081201
  22. BACTRIM [Concomitant]
     Indication: PROPHYLAXIS
     Dosage: UNK
  23. SINGULAIR [Concomitant]
     Dosage: UNK
  24. ASMANEX TWISTHALER [Concomitant]
     Dosage: 220 MCG
  25. FLUNISOLIDE [Concomitant]
     Dosage: UNK
     Route: 045

REACTIONS (36)
  - PNEUMONIA [None]
  - HYDRONEPHROSIS [None]
  - ANXIETY [None]
  - OSTEOPOROSIS [None]
  - HYPOPHAGIA [None]
  - PAIN IN JAW [None]
  - OSTEOPENIA [None]
  - ANAEMIA [None]
  - KYPHOSIS [None]
  - EMOTIONAL DISTRESS [None]
  - MUSCULOSKELETAL CHEST PAIN [None]
  - TOOTH LOSS [None]
  - EMPHYSEMA [None]
  - INFECTION [None]
  - ARTHRITIS [None]
  - BACK PAIN [None]
  - COUGH [None]
  - RESPIRATORY FAILURE [None]
  - OSTEONECROSIS OF JAW [None]
  - DEFORMITY [None]
  - FACIAL PAIN [None]
  - TOOTH INFECTION [None]
  - INTERSTITIAL LUNG DISEASE [None]
  - CALCULUS URETERIC [None]
  - MONOCLONAL IMMUNOGLOBULIN PRESENT [None]
  - DYSPNOEA [None]
  - PAIN [None]
  - STERNAL FRACTURE [None]
  - NEPHROLITHIASIS [None]
  - COMPRESSION FRACTURE [None]
  - WALKING AID USER [None]
  - BLOOD IMMUNOGLOBULIN G INCREASED [None]
  - BONE LESION [None]
  - RESPIRATORY DISTRESS [None]
  - BONE DISORDER [None]
  - HYPERSENSITIVITY [None]
